FAERS Safety Report 9630140 (Version 1)
Quarter: 2013Q4

REPORT INFORMATION
  Report Type: Spontaneous
  Country: US (occurrence: US)
  Receive Date: 20131017
  Receipt Date: 20131017
  Transmission Date: 20140711
  Serious: No
  Sender: FDA-Public Use
  Company Number: PHEH2013US021467

PATIENT
  Sex: Male

DRUGS (13)
  1. TASIGNA [Suspect]
     Indication: LEUKAEMIA
     Dosage: 150 MG, TWICE DAILY
     Dates: start: 20131011
  2. FENOFIBRATE [Concomitant]
     Dosage: 54 MG, UNK
  3. ASPIRIN [Concomitant]
     Dosage: 325 MG, UNK
  4. LANTUS [Concomitant]
     Dosage: 65 U, UNK
  5. HUMALOG [Concomitant]
     Dosage: 10 U, DAILY
  6. CARVEDILOL [Concomitant]
     Dosage: 12.5 MG, UNK
  7. LOVASTATIN [Concomitant]
     Dosage: 20 MG, UNK
  8. ISOSORBID MONONITRATE [Concomitant]
     Dosage: 30 MG, UNK
  9. LISINOPRIL [Concomitant]
     Dosage: 40 MG, UNK
  10. ALLOPURINOL [Concomitant]
     Dosage: 100 MG, UNK
  11. CLOPIDOGREL [Concomitant]
     Dosage: 75 MG, UNK
  12. AMLODIPINE BESILATE [Concomitant]
     Dosage: 5 MG, UNK
  13. METFORMIN [Concomitant]
     Dosage: 500 MG, UNK

REACTIONS (1)
  - Abdominal pain upper [Unknown]
